FAERS Safety Report 6943864-X (Version None)
Quarter: 2010Q3

REPORT INFORMATION
  Report Type: 
  Country: None (occurrence: None)
  Receive Date: 20100826
  Receipt Date: 20100820
  Transmission Date: 20110219
  Serious: Yes (Death, Hospitalization)
  Sender: FDA-Public Use
  Company Number: A0876981A

PATIENT
  Sex: Male

DRUGS (2)
  1. AVANDIA [Suspect]
     Route: 048
  2. INSULIN [Concomitant]

REACTIONS (1)
  - DEATH [None]
